FAERS Safety Report 5945657-9 (Version None)
Quarter: 2008Q4

REPORT INFORMATION
  Report Type: 
  Country: None (occurrence: None)
  Receive Date: 20081107
  Receipt Date: 20081030
  Transmission Date: 20090506
  Serious: Yes (Hospitalization, Other)
  Sender: FDA-Public Use
  Company Number: NL-PFIZER INC-2008093364

PATIENT
  Sex: Male

DRUGS (2)
  1. ESTRACYT [Suspect]
     Indication: PROSTATE CANCER METASTATIC
     Route: 048
  2. ZOLADEX [Concomitant]

REACTIONS (2)
  - ABNORMAL BEHAVIOUR [None]
  - DELIRIUM [None]
